FAERS Safety Report 21575587 (Version 2)
Quarter: 2022Q4

REPORT INFORMATION
  Report Type: Spontaneous
  Country: DE (occurrence: DE)
  Receive Date: 20221110
  Receipt Date: 20221128
  Transmission Date: 20230113
  Serious: Yes (Congenital Anomaly, Other)
  Sender: FDA-Public Use
  Company Number: DE-002147023-NVSC2022DE237632

PATIENT
  Age: 35 Week
  Sex: Male

DRUGS (2)
  1. IBUPROFEN [Suspect]
     Active Substance: IBUPROFEN
     Indication: Foetal exposure during pregnancy
     Dosage: UNK,MATERNAL EXPOSURE DURING PREGNANCY1000 MG FOR 2 DAYS
     Route: 064
  2. ACETAMINOPHEN [Suspect]
     Active Substance: ACETAMINOPHEN
     Indication: Foetal exposure during pregnancy
     Dosage: UNK,MATERNAL EXPOSURE DURING PREGNANCY:
     Route: 064

REACTIONS (4)
  - Respiratory disorder neonatal [Unknown]
  - Ductus arteriosus stenosis foetal [Unknown]
  - Premature baby [Unknown]
  - Foetal exposure during pregnancy [Unknown]
